FAERS Safety Report 10343336 (Version 1)
Quarter: 2014Q3

REPORT INFORMATION
  Report Type: Report from Study
  Country: US (occurrence: US)
  Receive Date: 20140725
  Receipt Date: 20140725
  Transmission Date: 20150326
  Serious: Yes (Hospitalization, Other)
  Sender: FDA-Public Use
  Company Number: US-ABBVIE-14P-163-1262360-00

PATIENT
  Age: 20 Year
  Sex: Female

DRUGS (4)
  1. HUMIRA [Suspect]
     Active Substance: ADALIMUMAB
     Indication: COLITIS ULCERATIVE
     Dates: start: 20140409, end: 20140513
  2. BIRTH CONTROL PILL [Concomitant]
     Indication: PRODUCT USED FOR UNKNOWN INDICATION
  3. REMICADE [Suspect]
     Active Substance: INFLIXIMAB
     Indication: PRODUCT USED FOR UNKNOWN INDICATION
     Dates: start: 201312, end: 2014
  4. HUMIRA [Suspect]
     Active Substance: ADALIMUMAB
     Indication: CROHN^S DISEASE
     Dates: start: 2011

REACTIONS (13)
  - Abscess [Recovering/Resolving]
  - Drug ineffective [Unknown]
  - Vaginal flatulence [Unknown]
  - Fistula [Unknown]
  - Clostridium difficile infection [Unknown]
  - Proctalgia [Unknown]
  - Crohn^s disease [Unknown]
  - Vaginal fistula [Unknown]
  - Vaginal abscess [Unknown]
  - Pouchitis [Unknown]
  - Hiatus hernia [Unknown]
  - Fistula [Recovering/Resolving]
  - Anaphylactic reaction [Unknown]

NARRATIVE: CASE EVENT DATE: 2013
